FAERS Safety Report 15296261 (Version 1)
Quarter: 2018Q3

REPORT INFORMATION
  Report Type: Spontaneous
  Country: US (occurrence: US)
  Receive Date: 20180807
  Receipt Date: 20180807
  Transmission Date: 20181010
  Serious: Yes (Disabling, Other)
  Sender: FDA-Public Use
  Company Number: None

PATIENT
  Age: 59 Year
  Sex: Female
  Weight: 64.41 kg

DRUGS (2)
  1. AMLODIPINE BESYLATE. [Concomitant]
     Active Substance: AMLODIPINE BESYLATE
  2. VALSARTAN 160MG TABLET [Suspect]
     Active Substance: VALSARTAN
     Indication: HYPERTENSION
     Route: 048
     Dates: start: 20170901, end: 20180723

REACTIONS (3)
  - Renal failure [None]
  - Renal neoplasm [None]
  - Liver disorder [None]

NARRATIVE: CASE EVENT DATE: 20180430
